FAERS Safety Report 5354522-X (Version None)
Quarter: 2007Q2

REPORT INFORMATION
  Report Type: 
  Country: None (occurrence: None)
  Receive Date: 20070612
  Receipt Date: 20070603
  Transmission Date: 20071010
  Serious: Yes (Other)
  Sender: FDA-Public Use
  Company Number: AU-SANOFI-SYNTHELABO-A01200705847

PATIENT
  Sex: Female

DRUGS (1)
  1. STILNOX [Suspect]
     Dosage: UNK
     Route: 065

REACTIONS (3)
  - HALLUCINATION [None]
  - INTENTIONAL SELF-INJURY [None]
  - SLEEP WALKING [None]
